FAERS Safety Report 4603310-8 (Version None)
Quarter: 2005Q1

REPORT INFORMATION
  Report Type: 
  Country: None (occurrence: None)
  Receive Date: 20050223
  Receipt Date: 20050124
  Transmission Date: 20050727
  Serious: Yes (Hospitalization)
  Sender: FDA-Public Use
  Company Number: 2005UW02459

PATIENT
  Age: 39 Year
  Sex: Male
  Weight: 149.687 kg

DRUGS (2)
  1. CRESTOR [Suspect]
     Dosage: 10 MG PO
     Route: 048
     Dates: start: 20040713
  2. LIPITOR [Concomitant]

REACTIONS (5)
  - ABDOMINAL PAIN [None]
  - DYSPNOEA [None]
  - FLANK PAIN [None]
  - OEDEMA [None]
  - RHABDOMYOLYSIS [None]
